FAERS Safety Report 6902991-3 (Version None)
Quarter: 2010Q3

REPORT INFORMATION
  Report Type: 
  Country: None (occurrence: None)
  Receive Date: 20100803
  Receipt Date: 20080723
  Transmission Date: 20110219
  Serious: No
  Sender: FDA-Public Use
  Company Number: US-PFIZER INC-2008063001

PATIENT
  Sex: Female
  Weight: 59.09 kg

DRUGS (5)
  1. LYRICA [Suspect]
     Indication: FIBROMYALGIA
     Dates: start: 20080101, end: 20080501
  2. NO PRODUCT FOUND [Suspect]
  3. ATENOLOL [Concomitant]
  4. OXYCODONE [Concomitant]
  5. ANALGESICS [Concomitant]

REACTIONS (1)
  - OEDEMA PERIPHERAL [None]
